FAERS Safety Report 12341651 (Version 1)
Quarter: 2016Q2

REPORT INFORMATION
  Report Type: Spontaneous
  Country: IN (occurrence: IN)
  Receive Date: 20160506
  Receipt Date: 20160506
  Transmission Date: 20160815
  Serious: Yes (Other)
  Sender: FDA-Public Use
  Company Number: IN-ROCHE-1753717

PATIENT
  Age: 31 Year
  Sex: Female
  Weight: 56 kg

DRUGS (1)
  1. ACTILYSE [Suspect]
     Active Substance: ALTEPLASE
     Indication: ISCHAEMIC STROKE
     Dosage: START TIME: 1900 HOURS
     Route: 042
     Dates: start: 20160419, end: 20160419

REACTIONS (2)
  - Abortion [Unknown]
  - Maternal exposure during pregnancy [Unknown]
